FAERS Safety Report 8679534 (Version 3)
Quarter: 2012Q4

REPORT INFORMATION
  Report Type: Report from Study
  Country: US (occurrence: None)
  Receive Date: 20120709
  Receipt Date: 20120906
  Transmission Date: 20130627
  Serious: Yes (Hospitalization)
  Sender: FDA-Public Use
  Company Number: 2012SGN00288

PATIENT
  Age: 30 Year
  Sex: Female

DRUGS (17)
  1. BRENTUXIMAB VEDOTIN [Suspect]
     Indication: HODGKIN^S DISEASE RECURRENT
     Dates: start: 20120418, end: 20120614
  2. IFOSFAMIDE [Suspect]
     Dates: end: 20120614
  3. CARBOPLATIN [Suspect]
     Dates: end: 20120614
  4. ETOPOSIDE [Suspect]
     Dates: end: 20120614
  5. AMBIEN [Concomitant]
  6. APREPITANT [Concomitant]
  7. DEXAMETHASONE SODIUM PHOSPHATE [Concomitant]
  8. DOCUSATE SODIUM (DOCUSATE SODIUM) [Concomitant]
  9. ENOXAPRIN SODIUM (ENOXAPARIN SODIUM) [Concomitant]
  10. LEUPROLIDE ACETATE [Concomitant]
  11. LORAZEPAM [Concomitant]
  12. OMEPRAZOLE [Concomitant]
  13. ONDANSETRON [Concomitant]
  14. PANTOPRAZOLE [Concomitant]
  15. PEGFILGRASTIM (PEGFILGRASTIM) [Concomitant]
  16. PROCHLORPERAZINE (PROCHLORPERAZINE MALEATE) [Concomitant]
  17. SENNA [Concomitant]

REACTIONS (3)
  - Febrile neutropenia [None]
  - Nausea [None]
  - Diarrhoea [None]
